FAERS Safety Report 16781117 (Version 1)
Quarter: 2019Q3

REPORT INFORMATION
  Report Type: Spontaneous
  Country: PL (occurrence: PL)
  Receive Date: 20190906
  Receipt Date: 20190906
  Transmission Date: 20191005
  Serious: Yes (Other)
  Sender: FDA-Public Use
  Company Number: PHHY2019PL204659

PATIENT
  Age: 38 Year

DRUGS (2)
  1. GEMCITABINE. [Suspect]
     Active Substance: GEMCITABINE
     Indication: SARCOMA METASTATIC
     Dosage: UNK
     Route: 065
     Dates: start: 20170414, end: 20171003
  2. DOCETAXEL. [Suspect]
     Active Substance: DOCETAXEL
     Indication: SARCOMA METASTATIC
     Dosage: UNK
     Route: 065
     Dates: start: 20170414, end: 20171003

REACTIONS (3)
  - Product use in unapproved indication [Unknown]
  - Malignant neoplasm progression [Unknown]
  - Sarcoma metastatic [Unknown]
